FAERS Safety Report 24618505 (Version 1)
Quarter: 2024Q4

REPORT INFORMATION
  Report Type: Spontaneous
  Country: US (occurrence: None)
  Receive Date: 20241113
  Receipt Date: 20241113
  Transmission Date: 20250115
  Serious: Yes (Hospitalization)
  Sender: Public
  Company Number: None

PATIENT
  Sex: Female

DRUGS (2)
  1. PULMOZYME [Suspect]
     Active Substance: DORNASE ALFA
     Indication: Cystic fibrosis
     Dosage: FREQUENCY: 1 VIAL DAILY VIA NEBULIZER
     Dates: start: 201609
  2. ZYVOX [Concomitant]
     Active Substance: LINEZOLID

REACTIONS (1)
  - Pneumonia pseudomonal [None]
